FAERS Safety Report 4541717-8 (Version None)
Quarter: 2004Q4

REPORT INFORMATION
  Report Type: 
  Country: None (occurrence: None)
  Receive Date: 20041227
  Receipt Date: 20041210
  Transmission Date: 20050328
  Serious: Yes (Life-Threatening)
  Sender: FDA-Public Use
  Company Number: MK200411-0200-1

PATIENT
  Age: 74 Year
  Sex: Female

DRUGS (7)
  1. OPTIRAY 320 [Suspect]
     Indication: COMPUTERISED TOMOGRAM
     Dosage: 93 ML, ONCE, IV
     Route: 042
     Dates: start: 20041116, end: 20041116
  2. NILVADIPINE [Concomitant]
  3. VALSARTAN [Concomitant]
  4. FOMINOBEN HYDROCLORIDE [Concomitant]
  5. CARTEOLOL HCL [Concomitant]
  6. NIFEDIPINE [Concomitant]
  7. CLOTIAZEPAM [Concomitant]

REACTIONS (9)
  - BLOOD PRESSURE DECREASED [None]
  - BLOOD PRESSURE FLUCTUATION [None]
  - CHEST PAIN [None]
  - COLD SWEAT [None]
  - COUGH [None]
  - HYPOAESTHESIA [None]
  - OXYGEN SATURATION DECREASED [None]
  - POST PROCEDURAL COMPLICATION [None]
  - SOMNOLENCE [None]
